FAERS Safety Report 7059945-9 (Version None)
Quarter: 2010Q4

REPORT INFORMATION
  Report Type: 
  Country: None (occurrence: None)
  Receive Date: 20101025
  Receipt Date: 20101020
  Transmission Date: 20110411
  Serious: Yes (Death)
  Sender: FDA-Public Use
  Company Number: GB-TEVA-249013ISR

PATIENT
  Age: 70 Year
  Sex: Female
  Weight: 26.4 kg

DRUGS (2)
  1. FLUCONAZOLE [Suspect]
     Indication: SYSTEMIC CANDIDA
     Route: 048
     Dates: start: 20100111
  2. WARFARIN SODIUM [Interacting]
     Route: 048

REACTIONS (7)
  - CEREBRAL HAEMORRHAGE [None]
  - DRUG INTERACTION [None]
  - HAEMORRHAGE [None]
  - HEADACHE [None]
  - INTERNATIONAL NORMALISED RATIO INCREASED [None]
  - VIITH NERVE PARALYSIS [None]
  - VOMITING [None]
